FAERS Safety Report 22317431 (Version 4)
Quarter: 2023Q4

REPORT INFORMATION
  Report Type: Spontaneous
  Country: FR (occurrence: FR)
  Receive Date: 20230515
  Receipt Date: 20231117
  Transmission Date: 20240110
  Serious: Yes (Death, Hospitalization, Other)
  Sender: FDA-Public Use
  Company Number: FR-INCYTE CORPORATION-2023IN002135

PATIENT

DRUGS (2)
  1. TAFASITAMAB [Suspect]
     Active Substance: TAFASITAMAB
     Indication: Diffuse large B-cell lymphoma
     Dosage: 800 MILLIGRAM (12MILLIGRAM/KILOGRAM)
     Route: 065
     Dates: start: 20221025, end: 20230228
  2. APIXABAN [Concomitant]
     Active Substance: APIXABAN
     Indication: Atrial fibrillation
     Dosage: UNK
     Route: 065
     Dates: start: 20220128

REACTIONS (9)
  - Stenotrophomonas infection [Fatal]
  - Enterobacter infection [Fatal]
  - Pneumococcal infection [Fatal]
  - COVID-19 [Fatal]
  - Immunosuppression [Unknown]
  - Sepsis [Unknown]
  - Dyspnoea [Unknown]
  - Therapy partial responder [Unknown]
  - Weight decreased [Unknown]

NARRATIVE: CASE EVENT DATE: 20230101
